FAERS Safety Report 24674535 (Version 1)
Quarter: 2024Q4

REPORT INFORMATION
  Report Type: Spontaneous
  Country: US (occurrence: US)
  Receive Date: 20241128
  Receipt Date: 20241128
  Transmission Date: 20250114
  Serious: No
  Sender: Kenvue
  Company Number: US-KENVUE-20241101105

PATIENT
  Age: 86 Year
  Sex: Female

DRUGS (3)
  1. WOMENS ROGAINE [Suspect]
     Active Substance: MINOXIDIL
     Indication: Alopecia
     Dosage: UNK UNK, TWICE A DAY
     Route: 061
     Dates: start: 202410
  2. WOMENS ROGAINE [Suspect]
     Active Substance: MINOXIDIL
     Dosage: UNK UNK, ONCE A DAY
     Route: 061
     Dates: start: 202410
  3. l^oreal magic root cover up [Concomitant]
     Indication: Hair colour changes
     Route: 061

REACTIONS (3)
  - Underdose [Unknown]
  - Inappropriate schedule of product administration [Unknown]
  - Contraindicated product administered [Unknown]

NARRATIVE: CASE EVENT DATE: 20241001
